FAERS Safety Report 9317561 (Version 1)
Quarter: 2013Q2

REPORT INFORMATION
  Report Type: Spontaneous
  Country: US (occurrence: US)
  Receive Date: 20130530
  Receipt Date: 20130530
  Transmission Date: 20140414
  Serious: No
  Sender: FDA-Public Use
  Company Number: US-GLAXOSMITHKLINE-A0973048A

PATIENT
  Age: 57 Year
  Sex: Female

DRUGS (4)
  1. VENTOLIN [Suspect]
     Indication: ASTHMA
     Dosage: 2PUFF AS REQUIRED
     Route: 055
     Dates: start: 201203
  2. FLUTICASONE NASAL SPRAY [Concomitant]
     Indication: MULTIPLE ALLERGIES
     Dosage: 50MCG TWICE PER DAY
     Route: 055
     Dates: start: 201012
  3. QVAR [Concomitant]
     Indication: ASTHMA
     Dosage: 2PUFF TWICE PER DAY
     Route: 055
     Dates: start: 201003
  4. OMEPRAZOLE [Concomitant]
     Indication: GASTROOESOPHAGEAL REFLUX DISEASE
     Dosage: 20MG PER DAY
     Route: 048
     Dates: start: 200712

REACTIONS (2)
  - Drug ineffective [Recovering/Resolving]
  - Product quality issue [Unknown]
